FAERS Safety Report 14927824 (Version 1)
Quarter: 2018Q2

REPORT INFORMATION
  Report Type: Spontaneous
  Country: GB (occurrence: GB)
  Receive Date: 20180523
  Receipt Date: 20180523
  Transmission Date: 20180711
  Serious: Yes (Disabling)
  Sender: FDA-Public Use
  Company Number: PHHY2018GB006002

PATIENT
  Age: 62 Year
  Sex: Male
  Weight: 70 kg

DRUGS (1)
  1. TAMSULOSIN [Suspect]
     Active Substance: TAMSULOSIN
     Indication: BENIGN PROSTATIC HYPERPLASIA
     Dosage: 20 UG, QD
     Route: 048
     Dates: start: 20170814, end: 20171205

REACTIONS (2)
  - Vision blurred [Not Recovered/Not Resolved]
  - Retinal vein occlusion [Unknown]

NARRATIVE: CASE EVENT DATE: 20171122
